FAERS Safety Report 9470801 (Version 1)
Quarter: 2013Q3

REPORT INFORMATION
  Report Type: Spontaneous
  Country: US (occurrence: US)
  Receive Date: 20130822
  Receipt Date: 20130822
  Transmission Date: 20140515
  Serious: No
  Sender: FDA-Public Use
  Company Number: US-PFIZER INC-2013241363

PATIENT
  Sex: Female

DRUGS (3)
  1. ADVIL [Suspect]
     Indication: NERVE INJURY
     Dosage: UNK
  2. ADVIL [Suspect]
     Indication: BURNING SENSATION
  3. ADVIL [Suspect]
     Indication: PAIN

REACTIONS (1)
  - Drug ineffective for unapproved indication [Unknown]
